FAERS Safety Report 5482494-6 (Version None)
Quarter: 2007Q4

REPORT INFORMATION
  Report Type: 
  Country: None (occurrence: None)
  Receive Date: 20071011
  Receipt Date: 20071003
  Transmission Date: 20080405
  Serious: Yes (Death)
  Sender: FDA-Public Use
  Company Number: IN-BAXTER-2007BH008117

PATIENT
  Age: 73 Year
  Sex: Male
  Weight: 62 kg

DRUGS (4)
  1. DIANEAL [Suspect]
     Indication: PERITONEAL DIALYSIS
     Dosage: DOSE UNIT:UNKNOWN
     Route: 033
     Dates: start: 20030810, end: 20071001
  2. DIANEAL [Suspect]
     Dosage: DOSE UNIT:UNKNOWN
     Route: 033
     Dates: start: 20030810, end: 20071001
  3. EXTRANEAL [Suspect]
     Indication: PERITONEAL DIALYSIS
     Dosage: DOSE UNIT:UNKNOWN
     Route: 033
     Dates: start: 20030810, end: 20071001
  4. EXTRANEAL [Suspect]
     Dosage: DOSE UNIT:UNKNOWN
     Route: 033
     Dates: start: 20030810, end: 20071001

REACTIONS (1)
  - PNEUMONIA [None]
